FAERS Safety Report 14214719 (Version 4)
Quarter: 2017Q4

REPORT INFORMATION
  Report Type: Report from Study
  Country: CA (occurrence: CA)
  Receive Date: 20171122
  Receipt Date: 20171218
  Transmission Date: 20180321
  Serious: Yes (Other)
  Sender: FDA-Public Use
  Company Number: CA-UCBSA-2017046577

PATIENT
  Age: 32 Year
  Sex: Male

DRUGS (4)
  1. CERTOLIZUMAB PEGOL ASP [Suspect]
     Active Substance: CERTOLIZUMAB PEGOL
     Indication: ANKYLOSING SPONDYLITIS
     Dosage: 400 MG, EV 2 WEEKS(QOW)
     Route: 058
     Dates: start: 20171025, end: 20171108
  2. CANNABIS [Concomitant]
     Active Substance: CANNABIS SATIVA SUBSP. INDICA TOP
     Indication: SLEEP DISORDER
  3. CLONAZEPAM. [Concomitant]
     Active Substance: CLONAZEPAM
     Indication: PRODUCT USED FOR UNKNOWN INDICATION
  4. MELATONIN [Concomitant]
     Active Substance: MELATONIN
     Indication: PRODUCT USED FOR UNKNOWN INDICATION
     Dosage: UNK
     Dates: start: 201711

REACTIONS (14)
  - Loss of consciousness [Unknown]
  - Decreased appetite [Unknown]
  - Dizziness [Unknown]
  - Viral infection [Unknown]
  - Memory impairment [Recovered/Resolved]
  - Asthenia [Recovering/Resolving]
  - Hot flush [Unknown]
  - Spinal pain [Not Recovered/Not Resolved]
  - Palpitations [Recovered/Resolved]
  - Concussion [Recovered/Resolved]
  - Productive cough [Recovering/Resolving]
  - Dyspnoea [Unknown]
  - Hypotension [Unknown]
  - Weight decreased [Unknown]

NARRATIVE: CASE EVENT DATE: 2017
